FAERS Safety Report 10576219 (Version 1)
Quarter: 2014Q4

REPORT INFORMATION
  Report Type: Spontaneous
  Country: US (occurrence: None)
  Receive Date: 20141110
  Receipt Date: 20141110
  Transmission Date: 20150529
  Serious: Yes (Other)
  Sender: FDA-Public Use
  Company Number: None

PATIENT
  Age: 72 Year
  Sex: Female
  Weight: 74.84 kg

DRUGS (1)
  1. RIZATRIPTAN [Suspect]
     Active Substance: RIZATRIPTAN
     Indication: MIGRAINE
     Dosage: 1 PILL AS NEEDED TAKEN BY MOUTH
     Route: 048
     Dates: start: 20130615, end: 20141108

REACTIONS (8)
  - Product packaging issue [None]
  - Vomiting [None]
  - Product quality issue [None]
  - Product taste abnormal [None]
  - Product physical issue [None]
  - Nausea [None]
  - Product substitution issue [None]
  - Product container issue [None]

NARRATIVE: CASE EVENT DATE: 20141108
